FAERS Safety Report 7328501-7 (Version None)
Quarter: 2011Q1

REPORT INFORMATION
  Report Type: 
  Country: None (occurrence: None)
  Receive Date: 20110216
  Receipt Date: 20110211
  Transmission Date: 20110831
  Serious: Yes (Death)
  Sender: FDA-Public Use
  Company Number: 2011SP006611

PATIENT

DRUGS (2)
  1. AERIUS (DESLORATADINE /01398501/) [Suspect]
     Indication: PREGNANCY
     Dosage: TRPL
     Route: 064
     Dates: end: 20090501
  2. AVLOCARDYL (PROPRANOLOL) [Suspect]
     Indication: PREGNANCY
     Dosage: TRPL
     Route: 064
     Dates: end: 20090501

REACTIONS (3)
  - RENAL APLASIA [None]
  - MATERNAL DRUGS AFFECTING FOETUS [None]
  - ABORTION INDUCED [None]
